FAERS Safety Report 26083879 (Version 1)
Quarter: 2025Q4

REPORT INFORMATION
  Report Type: Spontaneous
  Country: EU (occurrence: EU)
  Receive Date: 20251124
  Receipt Date: 20251124
  Transmission Date: 20260117
  Serious: Yes (Hospitalization)
  Sender: NOVARTIS
  Company Number: EU-002147023-NVSC2025DE153653

PATIENT
  Age: 16 Year
  Sex: Male
  Weight: 39 kg

DRUGS (1)
  1. KYMRIAH [Suspect]
     Active Substance: TISAGENLECLEUCEL
     Indication: Lymphocytic leukaemia
     Dosage: UNK, ONCE/SINGLE ((1X10^9 VITAL CELLS ABSOLUTE))
     Route: 042
     Dates: start: 20200113, end: 20200113

REACTIONS (1)
  - Acute lymphocytic leukaemia recurrent [Recovering/Resolving]

NARRATIVE: CASE EVENT DATE: 20250908
